FAERS Safety Report 9827673 (Version 2)
Quarter: 2014Q1

REPORT INFORMATION
  Report Type: Spontaneous
  Country: BR (occurrence: BR)
  Receive Date: 20140117
  Receipt Date: 20140124
  Transmission Date: 20141002
  Serious: Yes (Death)
  Sender: FDA-Public Use
  Company Number: BR-B.I. PHARMACEUTICALS,INC./RIDGEFIELD-2014-BI-02169BR

PATIENT
  Age: 61 Year
  Sex: Male
  Weight: 110 kg

DRUGS (3)
  1. MICARDIS [Suspect]
     Indication: HYPERTENSION
     Dosage: 80 MG
     Route: 048
     Dates: start: 2012, end: 20131207
  2. VASTERAL [Concomitant]
     Indication: CARDIAC DISORDER
     Route: 048
     Dates: start: 201107, end: 20131207
  3. ASPIRINA [Concomitant]
     Indication: BLOOD DISORDER
     Route: 048
     Dates: start: 201107, end: 20131207

REACTIONS (1)
  - Infarction [Fatal]
